FAERS Safety Report 15529171 (Version 1)
Quarter: 2018Q4

REPORT INFORMATION
  Report Type: Spontaneous
  Country: GB (occurrence: GB)
  Receive Date: 20181020
  Receipt Date: 20181020
  Transmission Date: 20190205
  Serious: Yes (Hospitalization)
  Sender: FDA-Public Use
  Company Number: GB-MICRO LABS LIMITED-BB2018-02287

PATIENT
  Age: 84 Year
  Sex: Male

DRUGS (12)
  1. AMOXICILLIN/CLAVULANIC ACID [Suspect]
     Active Substance: AMOXICILLIN\CLAVULANIC ACID
     Dosage: 500MG/125MG
     Dates: start: 20180910, end: 20180913
  2. WARFARIN [Concomitant]
     Active Substance: WARFARIN
  3. SALBUTAMOL [Concomitant]
     Active Substance: ALBUTEROL
  4. BISOPROLOL [Suspect]
     Active Substance: BISOPROLOL
  5. FLUCLOXACILLIN [Concomitant]
     Active Substance: FLUCLOXACILLIN
     Dates: start: 20180618, end: 20180624
  6. CLOPIDOGREL [Concomitant]
     Active Substance: CLOPIDOGREL BISULFATE
  7. QVAR [Concomitant]
     Active Substance: BECLOMETHASONE DIPROPIONATE
  8. ATORVASTATIN [Concomitant]
     Active Substance: ATORVASTATIN
  9. ADALAT CC [Suspect]
     Active Substance: NIFEDIPINE
     Dates: end: 20180913
  10. AMITRIPTYLINE [Concomitant]
     Active Substance: AMITRIPTYLINE
  11. PERINDOPRIL TERT-BUTYLAMINE [Suspect]
     Active Substance: PERINDOPRIL ERBUMINE
     Route: 048
     Dates: end: 20180913
  12. RANITIDINE. [Concomitant]
     Active Substance: RANITIDINE

REACTIONS (4)
  - Orthostatic hypotension [Recovering/Resolving]
  - Erythema multiforme [Recovering/Resolving]
  - Acute kidney injury [Unknown]
  - Syncope [Unknown]

NARRATIVE: CASE EVENT DATE: 20180912
